FAERS Safety Report 19570372 (Version 2)
Quarter: 2021Q4

REPORT INFORMATION
  Report Type: Other
  Country: CN (occurrence: CN)
  Receive Date: 20210716
  Receipt Date: 20211029
  Transmission Date: 20220303
  Serious: Yes (Other)
  Sender: FDA-Public Use
  Company Number: CN-ROCHE-2872167

PATIENT

DRUGS (5)
  1. ERLOTINIB [Suspect]
     Active Substance: ERLOTINIB
     Indication: Non-small cell lung cancer
     Route: 048
  2. BEVACIZUMAB [Suspect]
     Active Substance: BEVACIZUMAB
     Indication: Non-small cell lung cancer
     Route: 065
  3. ICOTINIB [Suspect]
     Active Substance: ICOTINIB
     Indication: Non-small cell lung cancer
     Route: 065
  4. GEFITINIB [Suspect]
     Active Substance: GEFITINIB
     Indication: Non-small cell lung cancer
     Route: 065
  5. PEMETREXED [Suspect]
     Active Substance: PEMETREXED
     Indication: Non-small cell lung cancer
     Route: 065

REACTIONS (9)
  - Neutropenia [Unknown]
  - Leukopenia [Unknown]
  - Hepatotoxicity [Unknown]
  - Venous thrombosis [Unknown]
  - Fatigue [Unknown]
  - Hypertension [Unknown]
  - Rash [Unknown]
  - Diarrhoea [Unknown]
  - Drug resistance [Unknown]
